FAERS Safety Report 6277038-5 (Version None)
Quarter: 2009Q3

REPORT INFORMATION
  Report Type: 
  Country: None (occurrence: None)
  Receive Date: 20090722
  Receipt Date: 20081204
  Transmission Date: 20100115
  Serious: No
  Sender: FDA-Public Use
  Company Number: US-BRISTOL-MYERS SQUIBB COMPANY-14431225

PATIENT
  Age: 51 Year
  Sex: Male

DRUGS (2)
  1. COUMADIN [Suspect]
     Indication: PULMONARY THROMBOSIS
     Dosage: TAKEN SINGLE DOSE.
     Dates: start: 20081111, end: 20081111
  2. LOVENOX [Suspect]
     Indication: PULMONARY THROMBOSIS
     Dosage: ENOXAPARIN SOLUTION FOR INJECTION
     Route: 058
     Dates: start: 20081110

REACTIONS (1)
  - RASH [None]
